FAERS Safety Report 16770889 (Version 3)
Quarter: 2019Q4

REPORT INFORMATION
  Report Type: Spontaneous
  Country: JP (occurrence: JP)
  Receive Date: 20190904
  Receipt Date: 20191115
  Transmission Date: 20200122
  Serious: Yes (Other)
  Sender: FDA-Public Use
  Company Number: JP-ABBVIE-19P-087-2906501-00

PATIENT
  Age: 10 Year
  Sex: Female
  Weight: 42.6 kg

DRUGS (3)
  1. LEUPLIN [Suspect]
     Active Substance: LEUPROLIDE ACETATE
     Dosage: 60 MICROGRAM/KILOGRAM
     Route: 058
     Dates: start: 20190722, end: 20190722
  2. LEUPLIN [Suspect]
     Active Substance: LEUPROLIDE ACETATE
     Dosage: 0.68 MILLILITER, MONTHLY
     Route: 058
     Dates: start: 20190522, end: 20190522
  3. LEUPLIN [Suspect]
     Active Substance: LEUPROLIDE ACETATE
     Indication: HYPERGONADISM
     Dosage: 0.34 MILLILITER, MONTHLY
     Route: 058
     Dates: start: 20190424, end: 20190424

REACTIONS (8)
  - Urticaria [Recovering/Resolving]
  - Eyelid ptosis [Unknown]
  - Fatigue [Unknown]
  - Off label use [Unknown]
  - Anaphylactic reaction [Unknown]
  - Angioedema [Recovering/Resolving]
  - Product administered at inappropriate site [Unknown]
  - Conjunctivitis allergic [Unknown]

NARRATIVE: CASE EVENT DATE: 2019
